FAERS Safety Report 14431212 (Version 1)
Quarter: 2018Q1

REPORT INFORMATION
  Report Type: Spontaneous
  Country: DE (occurrence: DE)
  Receive Date: 20180124
  Receipt Date: 20180124
  Transmission Date: 20180509
  Serious: Yes (Other)
  Sender: FDA-Public Use
  Company Number: DE-BIOGEN-2018BI00514488

PATIENT

DRUGS (1)
  1. TYSABRI [Suspect]
     Active Substance: NATALIZUMAB
     Indication: MULTIPLE SCLEROSIS
     Route: 065

REACTIONS (6)
  - Multiple sclerosis relapse [Unknown]
  - Haematopoietic neoplasm [Unknown]
  - Lymphoma [Unknown]
  - Leukaemia [Unknown]
  - Bone marrow disorder [Unknown]
  - Blood test abnormal [Unknown]
